FAERS Safety Report 5388987-4 (Version None)
Quarter: 2007Q3

REPORT INFORMATION
  Report Type: 
  Country: None (occurrence: None)
  Receive Date: 20070717
  Receipt Date: 20070710
  Transmission Date: 20080115
  Serious: Yes (Other)
  Sender: FDA-Public Use
  Company Number: PHBS2007BR11840

PATIENT
  Age: 63 Year
  Sex: Female
  Weight: 80 kg

DRUGS (3)
  1. DIOVAN HCT [Suspect]
     Indication: HYPERTENSION
     Dosage: VAL 160 7 HCT 12.5 MG/DAY
     Route: 048
  2. DIOVAN HCT [Suspect]
     Dosage: VALS 160 7 HCT 12.5 MG/DAY
     Route: 048
     Dates: start: 20070708
  3. ATENSINA [Concomitant]
     Indication: HYPERTENSION
     Dosage: 4 MG/DAY
     Route: 048
     Dates: start: 20050501

REACTIONS (9)
  - COUGH [None]
  - DIZZINESS [None]
  - FEELING ABNORMAL [None]
  - HEAD DISCOMFORT [None]
  - HEADACHE [None]
  - HYPERTENSION [None]
  - NASOPHARYNGITIS [None]
  - NECK PAIN [None]
  - VISION BLURRED [None]
